FAERS Safety Report 8424401-X (Version None)
Quarter: 2012Q2

REPORT INFORMATION
  Report Type: 
  Country: None (occurrence: None)
  Receive Date: 20120608
  Receipt Date: 20110712
  Transmission Date: 20120825
  Serious: No
  Sender: FDA-Public Use
  Company Number: US-ASTRAZENECA-2011SE41681

PATIENT
  Age: 2 Year
  Sex: Female

DRUGS (2)
  1. PULMICORT [Suspect]
     Dosage: DAILY
     Route: 055
     Dates: start: 20110708
  2. PREDNISONE [Concomitant]

REACTIONS (2)
  - DARK CIRCLES UNDER EYES [None]
  - WEIGHT DECREASED [None]
